FAERS Safety Report 5081279-2 (Version None)
Quarter: 2006Q3

REPORT INFORMATION
  Report Type: 
  Country: None (occurrence: None)
  Receive Date: 20060816
  Receipt Date: 20060808
  Transmission Date: 20061208
  Serious: Yes (Hospitalization, Other)
  Sender: FDA-Public Use
  Company Number: US-NOVOPROD-255972

PATIENT
  Age: 75 Year
  Sex: Female
  Weight: 67 kg

DRUGS (5)
  1. NOVOLIN N [Suspect]
     Indication: INSULIN-REQUIRING TYPE II DIABETES MELLITUS
     Dosage: 40 IU, QD
     Route: 058
     Dates: start: 20050101
  2. LASIX                              /00032601/ [Concomitant]
     Indication: HYPERTENSION
     Route: 048
  3. ANTI-DIABETICS [Concomitant]
     Indication: INSULIN-REQUIRING TYPE II DIABETES MELLITUS
     Route: 048
  4. ANTIHYPERTENSIVES [Concomitant]
     Indication: HYPERTENSION
  5. CARDIAC THERAPY [Concomitant]
     Indication: CARDIAC DISORDER

REACTIONS (3)
  - COLONIC POLYP [None]
  - DEHYDRATION [None]
  - DIARRHOEA [None]
